FAERS Safety Report 15048933 (Version 1)
Quarter: 2018Q2

REPORT INFORMATION
  Report Type: Spontaneous
  Country: IT (occurrence: IT)
  Receive Date: 20180622
  Receipt Date: 20180622
  Transmission Date: 20180711
  Serious: Yes (Other)
  Sender: FDA-Public Use
  Company Number: IT-CONCORDIA PHARMACEUTICALS INC.-GSH201805-001696

PATIENT
  Age: 68 Year
  Sex: Male

DRUGS (2)
  1. EUTIROX [Concomitant]
     Active Substance: LEVOTHYROXINE SODIUM
     Indication: HYPOTHYROIDISM
  2. ALFUZOSIN [Suspect]
     Active Substance: ALFUZOSIN
     Indication: BENIGN PROSTATIC HYPERPLASIA
     Route: 048
     Dates: start: 20180410, end: 20180411

REACTIONS (3)
  - Orthostatic hypotension [Recovering/Resolving]
  - Syncope [Recovering/Resolving]
  - Loss of consciousness [Recovering/Resolving]

NARRATIVE: CASE EVENT DATE: 20180411
